FAERS Safety Report 23602717 (Version 2)
Quarter: 2024Q1

REPORT INFORMATION
  Report Type: Spontaneous
  Country: IT (occurrence: IT)
  Receive Date: 20240306
  Receipt Date: 20240318
  Transmission Date: 20240410
  Serious: Yes (Life-Threatening, Hospitalization, Other)
  Sender: FDA-Public Use
  Company Number: None

PATIENT
  Age: 20 Year
  Sex: Male

DRUGS (3)
  1. YESCARTA [Suspect]
     Active Substance: AXICABTAGENE CILOLEUCEL
     Indication: Primary mediastinal large B-cell lymphoma
     Dosage: 0.4 CELLS
     Route: 042
     Dates: start: 20231127, end: 20231127
  2. TOCILIZUMAB [Concomitant]
     Active Substance: TOCILIZUMAB
     Indication: Cytokine release syndrome
     Dosage: 2 DOSES
     Dates: start: 20231128, end: 20231203
  3. DEXAMETHASONE [Concomitant]
     Active Substance: DEXAMETHASONE
     Indication: Cytokine release syndrome
     Dosage: UNK
     Dates: start: 20231128, end: 20231203

REACTIONS (1)
  - Pulmonary embolism [Recovered/Resolved]

NARRATIVE: CASE EVENT DATE: 20231205
